FAERS Safety Report 6646713-2 (Version None)
Quarter: 2010Q1

REPORT INFORMATION
  Report Type: 
  Country: None (occurrence: None)
  Receive Date: 20100317
  Receipt Date: 20100303
  Transmission Date: 20100710
  Serious: Yes (Other)
  Sender: FDA-Public Use
  Company Number: US-1181095

PATIENT
  Sex: Male

DRUGS (2)
  1. NEVANAC [Suspect]
     Dosage: OPHTHAMIC
     Route: 047
  2. OMNIPRED [Suspect]
     Dosage: OPHTHALMIC
     Route: 047

REACTIONS (2)
  - EYE HAEMORRHAGE [None]
  - MYOCARDIAL INFARCTION [None]
